FAERS Safety Report 11519043 (Version 4)
Quarter: 2021Q3

REPORT INFORMATION
  Report Type: Spontaneous
  Country: US (occurrence: US)
  Receive Date: 20150917
  Receipt Date: 20210916
  Transmission Date: 20211014
  Serious: No
  Sender: FDA-Public Use
  Company Number: US-ALLERGAN-1514174US

PATIENT
  Sex: Female
  Weight: 72.56 kg

DRUGS (11)
  1. PRAVACHOL [Concomitant]
     Active Substance: PRAVASTATIN SODIUM
     Indication: BLOOD CHOLESTEROL INCREASED
     Dosage: 1 DF, QD
     Dates: start: 2003
  2. VANIQA [Suspect]
     Active Substance: EFLORNITHINE HYDROCHLORIDE
     Dosage: UNK UNK, BID
     Route: 061
     Dates: end: 20150828
  3. TIMOLOL. [Concomitant]
     Active Substance: TIMOLOL
     Indication: GLAUCOMA
     Dosage: 1 DF, QD
     Route: 047
     Dates: start: 2003
  4. VANIQA [Suspect]
     Active Substance: EFLORNITHINE HYDROCHLORIDE
     Dosage: UNK UNK, BID
     Route: 061
     Dates: start: 200507
  5. BRIMONIDINE [Concomitant]
     Active Substance: BRIMONIDINE TARTRATE
     Indication: INTRAOCULAR PRESSURE INCREASED
     Route: 047
  6. TIMOLOL. [Concomitant]
     Active Substance: TIMOLOL
     Indication: INTRAOCULAR PRESSURE INCREASED
  7. VANIQA [Suspect]
     Active Substance: EFLORNITHINE HYDROCHLORIDE
     Indication: HAIR GROWTH ABNORMAL
     Dosage: UNK, BID
     Route: 061
     Dates: start: 20190103, end: 202007
  8. VANIQA [Suspect]
     Active Substance: EFLORNITHINE HYDROCHLORIDE
     Dosage: UNK UNK, BID
     Route: 061
  9. TRAVATAN [Concomitant]
     Active Substance: TRAVOPROST
     Indication: GLAUCOMA
     Dosage: 1 DF, QD
     Dates: start: 2003
  10. LOSARTAN AND HYDROCHLOROTHIAZIDE [Concomitant]
     Active Substance: HYDROCHLOROTHIAZIDE\LOSARTAN POTASSIUM
     Indication: HYPERTENSION
     Dosage: 1 DF, QD
     Dates: start: 2014
  11. TAURINE [Concomitant]
     Active Substance: TAURINE
     Indication: SUPPLEMENTATION THERAPY

REACTIONS (3)
  - Hair growth abnormal [Not Recovered/Not Resolved]
  - Therapeutic response decreased [Unknown]
  - Drug ineffective [Unknown]

NARRATIVE: CASE EVENT DATE: 2015
